FAERS Safety Report 15562153 (Version 2)
Quarter: 2018Q4

REPORT INFORMATION
  Report Type: Spontaneous
  Country: FR (occurrence: FR)
  Receive Date: 20181029
  Receipt Date: 20181119
  Transmission Date: 20190205
  Serious: Yes (Hospitalization, Other)
  Sender: FDA-Public Use
  Company Number: FR-JUBILANT CADISTA PHARMACEUTICALS-2018JUB00432

PATIENT
  Age: 72 Year
  Sex: Female

DRUGS (1)
  1. OLMESARTAN MEDOXOMIL. [Suspect]
     Active Substance: OLMESARTAN MEDOXOMIL
     Indication: HYPERTENSIVE HEART DISEASE
     Dosage: 20 MG, 1X/DAY
     Route: 065

REACTIONS (3)
  - Malabsorption [Recovered/Resolved]
  - Sprue-like enteropathy [Recovered/Resolved]
  - Microvillous inclusion disease [Recovered/Resolved]

NARRATIVE: CASE EVENT DATE: 201611
